FAERS Safety Report 14586131 (Version 1)
Quarter: 2018Q1

REPORT INFORMATION
  Report Type: Spontaneous
  Country: MX (occurrence: MX)
  Receive Date: 20180301
  Receipt Date: 20180301
  Transmission Date: 20180509
  Serious: Yes (Other)
  Sender: FDA-Public Use
  Company Number: MX-GUERBET-MX-20180002

PATIENT
  Age: 17 Year
  Sex: Female
  Weight: 72 kg

DRUGS (1)
  1. OPTIRAY 320 [Suspect]
     Active Substance: IOVERSOL
     Indication: COMPUTERISED TOMOGRAM THORAX
     Route: 042
     Dates: start: 20180218, end: 20180218

REACTIONS (3)
  - Cough [Recovered/Resolved]
  - Sensation of foreign body [Recovered/Resolved]
  - Dyspnoea [Recovered/Resolved]

NARRATIVE: CASE EVENT DATE: 20180218
